FAERS Safety Report 4571693-3 (Version None)
Quarter: 2005Q1

REPORT INFORMATION
  Report Type: 
  Country: None (occurrence: None)
  Receive Date: 20050207
  Receipt Date: 20050127
  Transmission Date: 20050727
  Serious: Yes (Hospitalization)
  Sender: FDA-Public Use
  Company Number: FR-BRISTOL-MYERS SQUIBB COMPANY-12845848

PATIENT
  Age: 6 Year
  Sex: Male

DRUGS (9)
  1. ENDOXAN [Suspect]
     Indication: NON-HODGKIN'S LYMPHOMA STAGE IV
     Dates: start: 20041023, end: 20041023
  2. METHOTREXATE [Suspect]
     Indication: NON-HODGKIN'S LYMPHOMA STAGE IV
     Route: 037
     Dates: start: 20041030, end: 20041030
  3. VEPESID [Suspect]
     Indication: NON-HODGKIN'S LYMPHOMA STAGE IV
     Dates: start: 20041209, end: 20041212
  4. PREDNISOLONE [Suspect]
     Indication: NON-HODGKIN'S LYMPHOMA STAGE IV
     Dates: start: 20041023, end: 20041001
  5. VINCRISTINE [Suspect]
     Indication: NON-HODGKIN'S LYMPHOMA STAGE IV
     Dates: start: 20041029, end: 20041029
  6. HYDROCORTISONE [Suspect]
     Indication: NON-HODGKIN'S LYMPHOMA STAGE IV
     Route: 037
     Dates: start: 20041030, end: 20041030
  7. ARACYTINE [Suspect]
     Indication: NON-HODGKIN'S LYMPHOMA STAGE IV
     Route: 042
     Dates: start: 20041030, end: 20041030
  8. ADRIAMYCIN PFS [Suspect]
     Indication: NON-HODGKIN'S LYMPHOMA STAGE IV
     Dates: start: 20041030, end: 20041030
  9. FOLINIC ACID [Concomitant]
     Dates: start: 20041030, end: 20041101

REACTIONS (4)
  - ARTHRALGIA [None]
  - GROIN PAIN [None]
  - PARAESTHESIA [None]
  - POST PROCEDURAL COMPLICATION [None]
